FAERS Safety Report 4706154-1 (Version None)
Quarter: 2005Q2

REPORT INFORMATION
  Report Type: 
  Country: None (occurrence: None)
  Receive Date: 20050204
  Receipt Date: 20050204
  Transmission Date: 20051028
  Serious: Yes (Hospitalization)
  Sender: FDA-Public Use
  Company Number: None

PATIENT
  Sex: Female
  Weight: 97.977 kg

DRUGS (3)
  1. CLOZAPINE [Suspect]
     Indication: SCHIZOAFFECTIVE DISORDER
     Dosage: ONE Q AM 7 Q HS
     Dates: start: 20030601
  2. CRESTOR [Concomitant]
  3. COGENTIN [Concomitant]

REACTIONS (8)
  - ABNORMAL BEHAVIOUR [None]
  - DELUSION [None]
  - DRUG INEFFECTIVE [None]
  - DRUG LEVEL CHANGED [None]
  - HALLUCINATION, AUDITORY [None]
  - IMPAIRED SELF-CARE [None]
  - MEMORY IMPAIRMENT [None]
  - THERAPEUTIC RESPONSE UNEXPECTED WITH DRUG SUBSTITUTION [None]
